FAERS Safety Report 5584057-0 (Version None)
Quarter: 2008Q1

REPORT INFORMATION
  Report Type: 
  Country: None (occurrence: None)
  Receive Date: 20080104
  Receipt Date: 20080104
  Transmission Date: 20080703
  Serious: Yes (Death)
  Sender: FDA-Public Use
  Company Number: None

PATIENT
  Sex: Male
  Weight: 75 kg

DRUGS (3)
  1. LEVAQUIN [Suspect]
  2. FLAGYL [Suspect]
  3. AMOXICILLIN [Suspect]

REACTIONS (5)
  - ABDOMINAL PAIN [None]
  - ATRIAL FIBRILLATION [None]
  - DIARRHOEA [None]
  - HYPOVOLAEMIA [None]
  - SYNCOPE [None]
